FAERS Safety Report 12001081 (Version 1)
Quarter: 2016Q1

REPORT INFORMATION
  Report Type: Spontaneous
  Country: US (occurrence: US)
  Receive Date: 20160204
  Receipt Date: 20160204
  Transmission Date: 20160526
  Serious: No
  Sender: FDA-Public Use
  Company Number: US-SUN PHARMACEUTICAL INDUSTRIES LTD-2015SUN00822

PATIENT

DRUGS (5)
  1. METOPROLOL. [Suspect]
     Active Substance: METOPROLOL
     Indication: ATRIAL FIBRILLATION
     Dosage: UNK
     Route: 048
     Dates: start: 201501
  2. COUMADIN [Concomitant]
     Active Substance: WARFARIN SODIUM
  3. METOPROLOL TARTRATE 100MG TABLET [Suspect]
     Active Substance: METOPROLOL TARTRATE
     Indication: ATRIAL FIBRILLATION
     Dosage: 150 UNK, UNK
     Route: 048
     Dates: start: 2010
  4. METOPROLOL TARTRATE 100MG TABLET [Suspect]
     Active Substance: METOPROLOL TARTRATE
     Dosage: 150 UNK, UNK
     Route: 048
     Dates: start: 201503
  5. METOPROLOL TARTRATE 100MG TABLET [Suspect]
     Active Substance: METOPROLOL TARTRATE
     Dosage: 150 MG, BID
     Route: 048
     Dates: start: 201412

REACTIONS (2)
  - Pruritus [Not Recovered/Not Resolved]
  - Urticaria [Not Recovered/Not Resolved]

NARRATIVE: CASE EVENT DATE: 201501
